FAERS Safety Report 9744008 (Version 1)
Quarter: 2013Q4

REPORT INFORMATION
  Report Type: Spontaneous
  Country: US (occurrence: US)
  Receive Date: 20131210
  Receipt Date: 20131210
  Transmission Date: 20140711
  Serious: No
  Sender: FDA-Public Use
  Company Number: US-BIOGENIDEC-2013BI100035

PATIENT
  Age: 62 Year
  Sex: Female

DRUGS (12)
  1. TECFIDERA [Suspect]
     Indication: MULTIPLE SCLEROSIS
     Route: 048
     Dates: start: 20130927, end: 20131004
  2. TECFIDERA [Suspect]
     Indication: MULTIPLE SCLEROSIS
     Route: 048
     Dates: start: 20131004
  3. AMPYRA [Concomitant]
  4. VIT D [Concomitant]
  5. BACLOFEN [Concomitant]
  6. MYRTAZAPINE [Concomitant]
  7. OXYBUTYNIN [Concomitant]
  8. OXYCODONE [Concomitant]
  9. TUMS [Concomitant]
  10. COLACE [Concomitant]
  11. IBUPROFEN [Concomitant]
  12. TYLENOL [Concomitant]

REACTIONS (1)
  - Flushing [Recovered/Resolved]
